FAERS Safety Report 4654645-4 (Version None)
Quarter: 2005Q2

REPORT INFORMATION
  Report Type: 
  Country: None (occurrence: None)
  Receive Date: 20050504
  Receipt Date: 20050504
  Transmission Date: 20051028
  Serious: Yes (Other)
  Sender: FDA-Public Use
  Company Number: None

PATIENT
  Age: 19 Year
  Sex: Female

DRUGS (2)
  1. PHENERGAN HYDROCHLORIDE TAB [Suspect]
     Indication: NAUSEA
     Dosage: 25MG
  2. PHENERGAN HYDROCHLORIDE TAB [Suspect]
     Indication: VOMITING
     Dosage: 25MG

REACTIONS (2)
  - INFUSION SITE BURNING [None]
  - INFUSION SITE RASH [None]
